FAERS Safety Report 5010316-6 (Version None)
Quarter: 2006Q2

REPORT INFORMATION
  Report Type: 
  Country: None (occurrence: None)
  Receive Date: 20060404
  Receipt Date: 20051206
  Transmission Date: 20061013
  Serious: No
  Sender: FDA-Public Use
  Company Number: US200512001074

PATIENT
  Sex: Female

DRUGS (10)
  1. CYMBALTA [Suspect]
     Indication: NEURALGIA
     Dosage: SEE IMAGE
     Dates: start: 20051101
  2. SYNTHROID (LEVOTHTOXINE SODIUM) [Concomitant]
  3. DYAZIDE/CAN/ (HYDROCHLOROTHIAZIDE, TRIAMTERENE) [Concomitant]
  4. MULTIVITAMINS (ASCORBIC ACID, ERGOCALCIFEROL, FOLIC ACID, NICOTINAMIDE [Concomitant]
  5. CALCIUM (CALCIUM) [Concomitant]
  6. ADVAIR DISKUS 100/50 [Concomitant]
  7. INTAL [Concomitant]
  8. SPIRIVA [Concomitant]
  9. PREMARIN [Concomitant]
  10. SINGULAIR [Concomitant]

REACTIONS (2)
  - HEADACHE [None]
  - NECK PAIN [None]
